FAERS Safety Report 10707558 (Version 4)
Quarter: 2022Q1

REPORT INFORMATION
  Report Type: Report from Study
  Country: US (occurrence: US)
  Receive Date: 20150113
  Receipt Date: 20220329
  Transmission Date: 20220423
  Serious: Yes (Hospitalization, Disabling, Other)
  Sender: FDA-Public Use
  Company Number: US-SA-2015SA003073

PATIENT
  Age: 72 Year
  Sex: Female

DRUGS (16)
  1. TERIFLUNOMIDE [Suspect]
     Active Substance: TERIFLUNOMIDE
     Indication: Multiple sclerosis
     Dosage: 14 MG,QD
     Route: 048
     Dates: start: 20130902
  2. TERIFLUNOMIDE [Suspect]
     Active Substance: TERIFLUNOMIDE
     Dosage: 14 MG,QD
     Route: 048
     Dates: start: 20130921
  3. CETIRIZINE [Concomitant]
     Active Substance: CETIRIZINE HYDROCHLORIDE
  4. DICLOFENAC [Concomitant]
     Active Substance: DICLOFENAC
  5. DOCUSATE SODIUM [Concomitant]
     Active Substance: DOCUSATE SODIUM
  6. FAMOTIDINE [Concomitant]
     Active Substance: FAMOTIDINE
  7. FLUTICASONE [Concomitant]
     Active Substance: FLUTICASONE
  8. MELOXICAM [Concomitant]
     Active Substance: MELOXICAM
  9. MONTELUKAST [Concomitant]
     Active Substance: MONTELUKAST SODIUM
  10. TAMSULOSIN [Concomitant]
     Active Substance: TAMSULOSIN
     Dosage: UNK
     Dates: start: 2015
  11. TIZANIDINE [Concomitant]
     Active Substance: TIZANIDINE
     Dosage: UNK
  12. WELLBUTRIN [Concomitant]
     Active Substance: BUPROPION HYDROCHLORIDE
     Dosage: UNK
  13. ASCORBIC ACID [Concomitant]
     Active Substance: ASCORBIC ACID
  14. OXYBUTYNIN [Concomitant]
     Active Substance: OXYBUTYNIN
     Dosage: UNK
     Dates: start: 2017
  15. ASCORBIC ACID\CRANBERRY [Concomitant]
     Active Substance: ASCORBIC ACID\CRANBERRY
  16. MELATONIIN [Concomitant]

REACTIONS (13)
  - Gait inability [Not Recovered/Not Resolved]
  - Spinal stenosis [Not Recovered/Not Resolved]
  - Spinal pain [Not Recovered/Not Resolved]
  - Intervertebral disc protrusion [Not Recovered/Not Resolved]
  - Hemiparesis [Recovering/Resolving]
  - Spinal deformity [Unknown]
  - Asthenia [Unknown]
  - Condition aggravated [Unknown]
  - Multiple sclerosis [Unknown]
  - Muscular weakness [Unknown]
  - Asthenia [Unknown]
  - Shoulder arthroplasty [Unknown]
  - Alopecia [Recovered/Resolved]

NARRATIVE: CASE EVENT DATE: 20141230
